FAERS Safety Report 4858136-7 (Version None)
Quarter: 2005Q4

REPORT INFORMATION
  Report Type: 
  Country: None (occurrence: None)
  Receive Date: 20051219
  Receipt Date: 20050315
  Transmission Date: 20060501
  Serious: No
  Sender: FDA-Public Use
  Company Number: US-GLAXOSMITHKLINE-A0549804A

PATIENT
  Age: 39 Year
  Sex: Female

DRUGS (1)
  1. NICODERM CQ [Suspect]
     Dates: start: 20050313, end: 20050313

REACTIONS (8)
  - DIARRHOEA [None]
  - DIZZINESS [None]
  - HYPERHIDROSIS [None]
  - NAUSEA [None]
  - RESPIRATORY RATE INCREASED [None]
  - STOMACH DISCOMFORT [None]
  - TREMOR [None]
  - VOMITING [None]
